FAERS Safety Report 10714133 (Version 2)
Quarter: 2015Q1

REPORT INFORMATION
  Report Type: Spontaneous
  Country: US (occurrence: US)
  Receive Date: 20150115
  Receipt Date: 20150224
  Transmission Date: 20150721
  Serious: Yes (Hospitalization)
  Sender: FDA-Public Use
  Company Number: US-PFIZER INC-2015011244

PATIENT
  Age: 80 Year
  Sex: Female
  Weight: 59 kg

DRUGS (13)
  1. WARFARIN [Concomitant]
     Active Substance: WARFARIN
     Dosage: 5MG TABLETS ON SUNDAY AND TUESDAY AND 2.5 MG FOR REST OF THE WEEK
  2. VITAMIN D3 [Concomitant]
     Active Substance: CHOLECALCIFEROL
     Dosage: 2000 IU, DAILY (IN THE MORNING)
  3. POTASSIUM CHLORIDE. [Concomitant]
     Active Substance: POTASSIUM CHLORIDE
     Dosage: 10 MEQ, EXTENDED RELEASE
  4. ATORVASTATIN [Concomitant]
     Active Substance: ATORVASTATIN
     Dosage: 10 MG, WEEKLY
  5. TIKOSYN [Suspect]
     Active Substance: DOFETILIDE
     Indication: ATRIAL FIBRILLATION
     Dosage: 125 MG, 2X/DAY (Q 12HRS)
     Dates: start: 20140626, end: 20150121
  6. FERROUS SULFATE [Concomitant]
     Active Substance: FERROUS SULFATE\FERROUS SULFATE, DRIED
     Dosage: UNK
  7. ESTER-C [Concomitant]
     Active Substance: CALCIUM\VITAMINS
     Dosage: 1000 MG, 1X/DAY
  8. LEVOTHYROXINE [Concomitant]
     Active Substance: LEVOTHYROXINE
     Indication: HYPOTHYROIDISM
     Dosage: 0.100 MG, UNK
  9. DILTIAZEM [Concomitant]
     Active Substance: DILTIAZEM
     Indication: ATRIAL FIBRILLATION
     Dosage: 30 MG, 3X/DAY
     Dates: start: 20140623
  10. FUROSEMIDE. [Concomitant]
     Active Substance: FUROSEMIDE
     Dosage: 20 MG, 1X/DAY
  11. PREMARIN [Concomitant]
     Active Substance: ESTROGENS, CONJUGATED
     Dosage: 0.3 MG, 1X/DAY
  12. CALCIUM D3 VIT [Concomitant]
     Dosage: (CALCIUM 600 WITH VITAMIN D3), 1X/DAY
  13. COQ 10 [Concomitant]
     Active Substance: UBIDECARENONE
     Indication: MUSCLE SPASMS
     Dosage: 200 MG, 1X/DAY

REACTIONS (5)
  - Hiatus hernia [Recovered/Resolved]
  - Dry eye [Not Recovered/Not Resolved]
  - Diarrhoea [Not Recovered/Not Resolved]
  - Visual impairment [Not Recovered/Not Resolved]
  - Vision blurred [Not Recovered/Not Resolved]

NARRATIVE: CASE EVENT DATE: 20140922
